FAERS Safety Report 20680157 (Version 1)
Quarter: 2022Q2

REPORT INFORMATION
  Report Type: Spontaneous
  Country: US (occurrence: None)
  Receive Date: 20220405
  Receipt Date: 20220405
  Transmission Date: 20220720
  Serious: No
  Sender: FDA-Public Use
  Company Number: None

PATIENT
  Age: 72 Year
  Sex: Female

DRUGS (1)
  1. LEXISCAN [Suspect]
     Active Substance: REGADENOSON
     Indication: Cardiac stress test
     Dates: start: 20220330, end: 20220330

REACTIONS (1)
  - Injection site pain [None]

NARRATIVE: CASE EVENT DATE: 20220330
